FAERS Safety Report 20116363 (Version 2)
Quarter: 2022Q1

REPORT INFORMATION
  Report Type: Spontaneous
  Country: US (occurrence: US)
  Receive Date: 20211126
  Receipt Date: 20220127
  Transmission Date: 20220423
  Serious: No
  Sender: FDA-Public Use
  Company Number: US-BIOGEN-2020BI00905779

PATIENT
  Age: 52 Year
  Sex: Male

DRUGS (2)
  1. TECFIDERA [Suspect]
     Active Substance: DIMETHYL FUMARATE
     Indication: Multiple sclerosis
     Route: 048
     Dates: start: 20170427, end: 20201109
  2. TECFIDERA [Suspect]
     Active Substance: DIMETHYL FUMARATE
     Route: 048
     Dates: start: 201708, end: 202011

REACTIONS (10)
  - Product dose omission in error [Unknown]
  - Multiple sclerosis [Unknown]
  - Gastrooesophageal reflux disease [Unknown]
  - Abdominal discomfort [Recovered/Resolved]
  - Rash [Unknown]
  - Hot flush [Unknown]
  - Nausea [Recovered/Resolved]
  - Vomiting [Unknown]
  - Lymphocyte count decreased [Recovered/Resolved]
  - Flushing [Recovered/Resolved]

NARRATIVE: CASE EVENT DATE: 20170427
